FAERS Safety Report 9709408 (Version 1)
Quarter: 2013Q4

REPORT INFORMATION
  Report Type: Spontaneous
  Country: US (occurrence: US)
  Receive Date: 20131126
  Receipt Date: 20131126
  Transmission Date: 20140711
  Serious: Yes (Hospitalization)
  Sender: FDA-Public Use
  Company Number: US-SUN PHARMACEUTICAL INDUSTRIES LTD-2013SUN05054

PATIENT
  Age: 61 Year
  Sex: Female

DRUGS (1)
  1. OXYCODONE [Suspect]
     Indication: PRODUCT USED FOR UNKNOWN INDICATION
     Dosage: 60 MG, UNK
     Route: 048

REACTIONS (5)
  - Right ventricular dysfunction [Recovering/Resolving]
  - Acute hepatic failure [Recovering/Resolving]
  - Renal failure acute [Recovering/Resolving]
  - Acute respiratory failure [Recovering/Resolving]
  - Overdose [Recovering/Resolving]
